FAERS Safety Report 5475093-3 (Version None)
Quarter: 2007Q4

REPORT INFORMATION
  Report Type: 
  Country: None (occurrence: None)
  Receive Date: 20071002
  Receipt Date: 20070924
  Transmission Date: 20080405
  Serious: Yes (Hospitalization, Other)
  Sender: FDA-Public Use
  Company Number: GB-PFIZER INC-2007079901

PATIENT
  Sex: Male

DRUGS (2)
  1. LIPITOR [Suspect]
     Route: 048
  2. AMLODIPINE [Concomitant]

REACTIONS (2)
  - CARDIAC OPERATION [None]
  - NAUSEA [None]
